FAERS Safety Report 9919389 (Version 1)
Quarter: 2014Q1

REPORT INFORMATION
  Report Type: Spontaneous
  Country: NO (occurrence: NO)
  Receive Date: 20140224
  Receipt Date: 20140224
  Transmission Date: 20141002
  Serious: Yes (Life-Threatening, Hospitalization, Other)
  Sender: FDA-Public Use
  Company Number: NO-PFIZER INC-2014050516

PATIENT
  Age: 52 Year
  Sex: Male

DRUGS (8)
  1. LYRICA [Suspect]
     Indication: PAIN
     Dosage: 150 MG + 300 MG + 150 MG (DOSAGE INCREASED AFTER JUL2013, BEFORE NOV2013)
     Route: 048
     Dates: start: 201303
  2. TRIMETOPRIM ^NAF^ [Concomitant]
     Indication: PROPHYLAXIS URINARY TRACT INFECTION
     Dosage: PROBABLY 300 MG (?) IN THE EVENING
     Route: 048
  3. SOBRIL [Concomitant]
     Dosage: WHEN NEEDED
     Route: 048
  4. LIORESAL ^CIBA-GEIGY^ [Concomitant]
     Indication: MUSCLE SPASMS
     Dosage: 50 MG, 2X/DAY
     Route: 048
  5. ALBYL-E [Concomitant]
     Indication: CARDIOVASCULAR EVENT PROPHYLAXIS
     Dosage: 75 MG, 1X/DAY
     Route: 048
  6. SAROTEX [Concomitant]
     Indication: PAIN
     Dosage: 20-30 MG IN THE EVENING
     Route: 048
     Dates: start: 201307
  7. LACTULOSE [Concomitant]
     Dosage: APPROXIMATELY
     Route: 048
  8. LIPITOR [Concomitant]
     Dosage: 20 MG, 1X/DAY
     Route: 048

REACTIONS (8)
  - Hyponatraemia [Recovering/Resolving]
  - Quadriplegia [Recovering/Resolving]
  - Disorientation [Recovering/Resolving]
  - Respiratory failure [Recovering/Resolving]
  - Fluid overload [Recovering/Resolving]
  - Hypoxia [Recovering/Resolving]
  - Confusional state [Recovering/Resolving]
  - Pneumonia [Recovering/Resolving]
